FAERS Safety Report 4445407-1 (Version None)
Quarter: 2004Q3

REPORT INFORMATION
  Report Type: 
  Country: None (occurrence: None)
  Receive Date: 20040813
  Receipt Date: 20020918
  Transmission Date: 20050211
  Serious: Yes (Other)
  Sender: FDA-Public Use
  Company Number: M2002.2108

PATIENT
  Age: 61 Year
  Sex: Female
  Weight: 54.4316 kg

DRUGS (10)
  1. SPIRONOLACTONE 25 MG TABLET, GENEVA MANUFACTURER [Suspect]
     Indication: HYPERTENSION
     Dosage: 3X DAILY; 4 YEARS TO CURRENT
  2. CLONIDINE HCL [Concomitant]
  3. CIMETIDINE [Concomitant]
  4. PREMARIN [Concomitant]
  5. MONOPRIL [Concomitant]
  6. ARTHRITIS TYLENOL [Concomitant]
  7. ASPIRIN [Concomitant]
  8. ST. JOHNS [Concomitant]
  9. MULTIVITAMIN [Concomitant]
  10. GINGER [Concomitant]

REACTIONS (1)
  - ALOPECIA [None]
